FAERS Safety Report 6063743-2 (Version None)
Quarter: 2009Q1

REPORT INFORMATION
  Report Type: 
  Country: None (occurrence: None)
  Receive Date: 20090204
  Receipt Date: 20090122
  Transmission Date: 20090719
  Serious: Yes (Life-Threatening, Hospitalization, Other)
  Sender: FDA-Public Use
  Company Number: GB-RANBAXY-2009RR-21401

PATIENT
  Sex: Female
  Weight: 85 kg

DRUGS (7)
  1. AMOXICILLIN [Suspect]
     Indication: HELICOBACTER INFECTION
     Dosage: 500 MG, UNK
     Route: 048
     Dates: start: 20081021, end: 20081124
  2. CLARITHROMYCIN [Suspect]
     Indication: HELICOBACTER INFECTION
     Dosage: 500 MG, UNK
     Route: 048
     Dates: start: 20081121, end: 20081124
  3. LANSOPRAZOLE [Suspect]
     Indication: ABDOMINAL PAIN
     Dosage: 30 MG, UNK
     Route: 048
     Dates: start: 20081117, end: 20081124
  4. LANSOPRAZOLE [Suspect]
     Indication: HELICOBACTER INFECTION
  5. BUSCOPAN [Concomitant]
  6. ACETAMINOPHEN W/ CODEINE [Concomitant]
  7. LEVOTHYROXINE SODIUM [Concomitant]

REACTIONS (5)
  - ACUTE HEPATIC FAILURE [None]
  - COAGULOPATHY [None]
  - ENCEPHALOPATHY [None]
  - GASTROINTESTINAL HAEMORRHAGE [None]
  - RENAL IMPAIRMENT [None]
